FAERS Safety Report 4595325-3 (Version None)
Quarter: 2005Q1

REPORT INFORMATION
  Report Type: 
  Country: None (occurrence: None)
  Receive Date: 20050225
  Receipt Date: 20050225
  Transmission Date: 20050727
  Serious: Yes (Hospitalization)
  Sender: FDA-Public Use
  Company Number: None

PATIENT
  Age: 41 Year
  Sex: Male
  Weight: 69 kg

DRUGS (3)
  1. FENTANYL [Suspect]
     Indication: BACK PAIN
     Dosage: 150MCG EVERY 72 HRS
  2. OXYCODONE 5MG TABLET [Suspect]
     Indication: ABDOMINAL PAIN UPPER
     Dosage: 10MG EVERY 4 HRS PRN
  3. OXYCODONE 5MG TABLET [Suspect]
     Indication: PANCREATIC PSEUDOCYST
     Dosage: 10MG EVERY 4 HRS PRN

REACTIONS (16)
  - ABDOMINAL PAIN [None]
  - BLOOD GLUCOSE INCREASED [None]
  - BLOOD PRESSURE DECREASED [None]
  - COMA [None]
  - DEPRESSED LEVEL OF CONSCIOUSNESS [None]
  - DIZZINESS [None]
  - DYSARTHRIA [None]
  - FATIGUE [None]
  - FEELING DRUNK [None]
  - HALLUCINATION, AUDITORY [None]
  - HEADACHE [None]
  - INSOMNIA [None]
  - MENTAL STATUS CHANGES [None]
  - PANCREATIC PSEUDOCYST [None]
  - RESPIRATORY RATE INCREASED [None]
  - VOMITING [None]
